FAERS Safety Report 4905439-3 (Version None)
Quarter: 2006Q1

REPORT INFORMATION
  Report Type: 
  Country: None (occurrence: None)
  Receive Date: 20060208
  Receipt Date: 20060203
  Transmission Date: 20060701
  Serious: Yes (Hospitalization)
  Sender: FDA-Public Use
  Company Number: US-MERCK-0602USA00726

PATIENT
  Age: 81 Year
  Sex: Female

DRUGS (6)
  1. FOSAMAX [Suspect]
     Indication: OSTEOPOROSIS
     Route: 048
     Dates: start: 19960101, end: 20031201
  2. FOSAMAX [Suspect]
     Route: 048
     Dates: start: 20031226, end: 20040815
  3. FOSAMAX [Suspect]
     Route: 048
     Dates: start: 20050324, end: 20050924
  4. NEURONTIN [Concomitant]
     Route: 065
  5. SYNTHROID [Concomitant]
     Route: 065
  6. CARDIZEM [Concomitant]
     Route: 065

REACTIONS (4)
  - FURUNCLE [None]
  - INFLUENZA LIKE ILLNESS [None]
  - OESOPHAGEAL PAIN [None]
  - SWOLLEN TONGUE [None]
